FAERS Safety Report 4398690-5 (Version None)
Quarter: 2004Q3

REPORT INFORMATION
  Report Type: 
  Country: None (occurrence: None)
  Receive Date: 20040712
  Receipt Date: 20040629
  Transmission Date: 20050211
  Serious: Yes (Hospitalization, Disabling)
  Sender: FDA-Public Use
  Company Number: 04P-056-0265347-00

PATIENT
  Age: 65 Year
  Sex: Male
  Weight: 82 kg

DRUGS (7)
  1. HUMIRA [Suspect]
     Indication: RHEUMATOID ARTHRITIS
     Dosage: 40 MG, 1 IN 2 WK, SUBCUTANEOUS; 1 IN 1 WK
     Route: 058
     Dates: start: 20040409, end: 20040628
  2. HUMIRA [Suspect]
     Indication: RHEUMATOID ARTHRITIS
     Dosage: 40 MG, 1 IN 2 WK, SUBCUTANEOUS; 1 IN 1 WK
     Route: 058
     Dates: start: 20040409, end: 20040628
  3. METHOTREXATE [Concomitant]
  4. FOLIC ACID [Concomitant]
  5. PREDNISONE [Concomitant]
  6. SOTALOL HYDROCHLORIDE [Concomitant]
  7. CLONAZEPAM [Concomitant]

REACTIONS (1)
  - ORCHITIS [None]
